FAERS Safety Report 11445922 (Version 1)
Quarter: 2015Q3

REPORT INFORMATION
  Report Type: Spontaneous
  Country: US (occurrence: US)
  Receive Date: 20150831
  Receipt Date: 20150831
  Transmission Date: 20151125
  Serious: No
  Sender: FDA-Public Use
  Company Number: US-ELI_LILLY_AND_COMPANY-US200809000175

PATIENT
  Age: 25 Year
  Sex: Male

DRUGS (3)
  1. ETHANOL [Concomitant]
     Active Substance: ALCOHOL
     Dosage: UNK, UNKNOWN
     Route: 048
     Dates: end: 200806
  2. ETHANOL [Concomitant]
     Active Substance: ALCOHOL
     Dosage: UNK, UNKNOWN
     Route: 048
     Dates: start: 200808
  3. CYMBALTA [Suspect]
     Active Substance: DULOXETINE HYDROCHLORIDE
     Indication: DEPRESSION
     Dosage: 60 MG, UNK
     Route: 048
     Dates: start: 20080827

REACTIONS (8)
  - Hypersomnia [Unknown]
  - Nausea [Unknown]
  - Staring [Unknown]
  - Pyrexia [Unknown]
  - Diarrhoea [Unknown]
  - Dry mouth [Unknown]
  - Chills [Unknown]
  - Decreased appetite [Unknown]

NARRATIVE: CASE EVENT DATE: 200808
